FAERS Safety Report 8957263 (Version 2)
Quarter: 2013Q1

REPORT INFORMATION
  Report Type: Spontaneous
  Country: US (occurrence: US)
  Receive Date: 20121211
  Receipt Date: 20130103
  Transmission Date: 20140127
  Serious: Yes (Other)
  Sender: FDA-Public Use
  Company Number: US-PFIZER INC-2012308919

PATIENT
  Age: 49 Year
  Sex: Female
  Weight: 53.52 kg

DRUGS (4)
  1. LYRICA [Suspect]
     Indication: PAIN
     Dosage: TWO CAPSULES OF 75MG, 1X/DAY
     Route: 048
     Dates: start: 20120921, end: 2012
  2. LYRICA [Suspect]
     Dosage: 75 MG, 1X/DAY
     Route: 048
     Dates: start: 2012, end: 201211
  3. TIZANIDINE [Concomitant]
     Indication: MUSCLE RELAXANT THERAPY
     Dosage: 4 MG, UNK
  4. NORCO [Concomitant]
     Dosage: UNK

REACTIONS (4)
  - Shock [Unknown]
  - Drug effect delayed [Unknown]
  - Somnolence [Unknown]
  - Incorrect dose administered [Unknown]
